FAERS Safety Report 4681365-2 (Version None)
Quarter: 2005Q2

REPORT INFORMATION
  Report Type: 
  Country: None (occurrence: None)
  Receive Date: 20050601
  Receipt Date: 20050519
  Transmission Date: 20051028
  Serious: Yes (Death)
  Sender: FDA-Public Use
  Company Number: 214653

PATIENT
  Age: 17 Year
  Sex: Female
  Weight: 50.9 kg

DRUGS (2)
  1. NUTROPIN AQ [Suspect]
     Indication: BODY HEIGHT BELOW NORMAL
     Dosage: 0.058 MG/KG, QD, SUBCUTANEOUS
     Route: 058
     Dates: start: 20041228, end: 20050418
  2. PREMARIN [Concomitant]

REACTIONS (2)
  - COMPLETED SUICIDE [None]
  - INJURY ASPHYXIATION [None]
